FAERS Safety Report 7604807-9 (Version None)
Quarter: 2011Q3

REPORT INFORMATION
  Report Type: 
  Country: None (occurrence: None)
  Receive Date: 20110712
  Receipt Date: 20110627
  Transmission Date: 20111222
  Serious: Yes (Death)
  Sender: FDA-Public Use
  Company Number: JP-SPECTRUM PHARMACEUTICALS, INC.-11-Z-JP-00078

PATIENT

DRUGS (11)
  1. FLUDARABINE PHOSPHATE [Suspect]
     Indication: FOLLICLE CENTRE LYMPHOMA, FOLLICULAR GRADE I, II, III STAGE IV
     Dosage: UNK
     Route: 042
  2. PREDNISONE [Suspect]
     Indication: FOLLICLE CENTRE LYMPHOMA, FOLLICULAR GRADE I, II, III STAGE IV
  3. CYCLOPHOSPHAMIDE [Suspect]
  4. PREDNISOLONE [Suspect]
     Indication: FOLLICLE CENTRE LYMPHOMA, FOLLICULAR GRADE I, II, III STAGE IV
  5. RITUXIMAB [Suspect]
     Indication: FOLLICLE CENTRE LYMPHOMA, FOLLICULAR GRADE I, II, III STAGE IV
  6. FLUDARABINE PHOSPHATE [Suspect]
     Indication: SURGICAL PRECONDITIONING
     Route: 042
  7. CYCLOPHOSPHAMIDE [Suspect]
     Indication: FOLLICLE CENTRE LYMPHOMA, FOLLICULAR GRADE I, II, III STAGE IV
  8. ZEVALIN [Suspect]
     Indication: FOLLICLE CENTRE LYMPHOMA, FOLLICULAR GRADE I, II, III STAGE IV
     Route: 042
  9. DOXORUBICIN HCL [Suspect]
     Indication: FOLLICLE CENTRE LYMPHOMA, FOLLICULAR GRADE I, II, III STAGE IV
  10. ONCOVIN [Suspect]
     Indication: FOLLICLE CENTRE LYMPHOMA, FOLLICULAR GRADE I, II, III STAGE IV
  11. ETOPOSIDE [Suspect]
     Indication: FOLLICLE CENTRE LYMPHOMA, FOLLICULAR GRADE I, II, III STAGE IV

REACTIONS (3)
  - EXTRADURAL HAEMATOMA [None]
  - ERYTHROLEUKAEMIA [None]
  - METASTASES TO MENINGES [None]
